APPROVED DRUG PRODUCT: RANITIDINE HYDROCHLORIDE
Active Ingredient: RANITIDINE HYDROCHLORIDE
Strength: EQ 300MG BASE
Dosage Form/Route: TABLET;ORAL
Application: A205512 | Product #002
Applicant: STRIDES PHARMA GLOBAL PTE LTD
Approved: Aug 22, 2016 | RLD: No | RS: No | Type: DISCN